FAERS Safety Report 4873305-8 (Version None)
Quarter: 2006Q1

REPORT INFORMATION
  Report Type: 
  Country: None (occurrence: None)
  Receive Date: 20060105
  Receipt Date: 20050621
  Transmission Date: 20060701
  Serious: Yes (Life-Threatening, Hospitalization)
  Sender: FDA-Public Use
  Company Number: NL-SANOFI-SYNTHELABO-A01200504284

PATIENT
  Sex: Male

DRUGS (4)
  1. PLAVIX [Suspect]
     Indication: PROPHYLAXIS
     Route: 048
     Dates: start: 20040410, end: 20041125
  2. PLAVIX [Suspect]
     Indication: MYOCARDIAL INFARCTION
     Route: 048
     Dates: start: 20040410, end: 20041125
  3. ASCAL CARDIO [Suspect]
     Indication: PROPHYLAXIS
     Route: 048
     Dates: start: 20040410, end: 20041125
  4. ASCAL CARDIO [Suspect]
     Indication: MYOCARDIAL INFARCTION
     Route: 048
     Dates: start: 20040410, end: 20041125

REACTIONS (1)
  - ARTERIAL FIBROSIS [None]
